FAERS Safety Report 18545218 (Version 1)
Quarter: 2020Q4

REPORT INFORMATION
  Report Type: Spontaneous
  Country: US (occurrence: US)
  Receive Date: 20201125
  Receipt Date: 20201125
  Transmission Date: 20210114
  Serious: Yes (Hospitalization)
  Sender: FDA-Public Use
  Company Number: None

PATIENT
  Sex: Male

DRUGS (2)
  1. CAPECITABINE. [Suspect]
     Active Substance: CAPECITABINE
     Indication: DRUG THERAPY
     Dosage: ?          OTHER FREQUENCY:3TABS AM,2TABS PM;?
     Route: 048
     Dates: start: 202007
  2. TEMOZOLOMIDE. [Suspect]
     Active Substance: TEMOZOLOMIDE
     Indication: DRUG THERAPY
     Dosage: ?          OTHER FREQUENCY:2CAPS D FOR 5 DAYS;?
     Route: 048
     Dates: start: 202007

REACTIONS (1)
  - Intestinal obstruction [None]
